FAERS Safety Report 23799001 (Version 1)
Quarter: 2024Q2

REPORT INFORMATION
  Report Type: Spontaneous
  Country: US (occurrence: None)
  Receive Date: 20240427
  Receipt Date: 20240427
  Transmission Date: 20240716
  Serious: Yes (Hospitalization)
  Sender: FDA-Public Use
  Company Number: None

PATIENT
  Age: 63 Year
  Sex: Female

DRUGS (1)
  1. IXEKIZUMAB [Suspect]
     Active Substance: IXEKIZUMAB
     Indication: Psoriasis
     Dosage: MG
     Dates: start: 20230315, end: 20230412

REACTIONS (6)
  - Rash [None]
  - Vomiting [None]
  - Decreased appetite [None]
  - Dry mouth [None]
  - Pruritus [None]
  - Dermatomyositis [None]

NARRATIVE: CASE EVENT DATE: 20230327
